FAERS Safety Report 5371112-3 (Version None)
Quarter: 2007Q2

REPORT INFORMATION
  Report Type: 
  Country: None (occurrence: None)
  Receive Date: 20070626
  Receipt Date: 20070615
  Transmission Date: 20071010
  Serious: Yes (Other)
  Sender: FDA-Public Use
  Company Number: JP-PFIZER INC-2007050566

PATIENT
  Age: 64 Year
  Sex: Female

DRUGS (7)
  1. SALAZOPYRIN [Suspect]
     Indication: COLITIS ULCERATIVE
     Dosage: DAILY DOSE:1GRAM
     Route: 054
  2. SALAZOPYRIN [Suspect]
     Route: 048
     Dates: start: 20070413, end: 20070615
  3. CLARITHROMYCIN [Concomitant]
     Route: 048
  4. CIPROFLOXACIN [Concomitant]
  5. VANCOMYCIN HCL [Concomitant]
     Route: 042
  6. MOVER [Concomitant]
  7. LORCAM [Concomitant]

REACTIONS (1)
  - WHITE BLOOD CELL COUNT DECREASED [None]
